FAERS Safety Report 25874482 (Version 1)
Quarter: 2025Q4

REPORT INFORMATION
  Report Type: Spontaneous
  Country: US (occurrence: None)
  Receive Date: 20251002
  Receipt Date: 20251002
  Transmission Date: 20260117
  Serious: Yes (Death)
  Sender: FDA-CTU
  Company Number: None

PATIENT
  Age: 49 Year
  Sex: Male
  Weight: 84.5 kg

DRUGS (14)
  1. INVEGA [Suspect]
     Active Substance: PALIPERIDONE
     Dosage: OTHER FREQUENCY : EVERY 3 MONTHS;?
     Route: 030
  2. LISINOPRIL [Suspect]
     Active Substance: LISINOPRIL
  3. amlodipine 5 mg QD [Concomitant]
  4. symbicort 160-4.5 mcg/actuation BID [Concomitant]
  5. vitamin d2 1250 mcg Qweekly [Concomitant]
  6. famotidine 20 mg BID [Concomitant]
  7. furosemide 40mg QD [Concomitant]
  8. gabapentin 100 mg TID [Concomitant]
  9. levothyroxine 137 mcg QD [Concomitant]
  10. Metformin 500 mg XR BID [Concomitant]
  11. potassium chloride 20 meq ER QD [Concomitant]
  12. rosuvastatin 5 mg QHS [Concomitant]
  13. sildenafil 50 mg PRN [Concomitant]
  14. Albuterol 90 mcg/actuation Q4H PRN [Concomitant]

REACTIONS (8)
  - Angioedema [None]
  - Therapy cessation [None]
  - Dyspnoea [None]
  - Anxiety [None]
  - Agitation [None]
  - Circulatory collapse [None]
  - Cardio-respiratory arrest [None]
  - Refusal of treatment by patient [None]

NARRATIVE: CASE EVENT DATE: 20250825
